FAERS Safety Report 5252817-1 (Version None)
Quarter: 2007Q1

REPORT INFORMATION
  Report Type: 
  Country: None (occurrence: None)
  Receive Date: 20070301
  Receipt Date: 20070108
  Transmission Date: 20070707
  Serious: No
  Sender: FDA-Public Use
  Company Number: US-GLAXOSMITHKLINE-A0630935A

PATIENT
  Age: 55 Year
  Sex: Female
  Weight: 56.4 kg

DRUGS (8)
  1. LAMICTAL [Suspect]
     Dosage: 25MG TWICE PER DAY
     Route: 048
     Dates: start: 20061101, end: 20061207
  2. HYTRIN [Concomitant]
  3. TERAZOSIN HCL [Concomitant]
  4. CLONAZEPAM [Concomitant]
  5. TIZANIDINE HCL [Concomitant]
  6. FLONASE [Concomitant]
  7. ALLEGRA [Concomitant]
  8. ESTRACE [Concomitant]

REACTIONS (1)
  - LYMPHADENOPATHY [None]
